FAERS Safety Report 11691449 (Version 2)
Quarter: 2015Q4

REPORT INFORMATION
  Report Type: Spontaneous
  Country: BR (occurrence: BR)
  Receive Date: 20151102
  Receipt Date: 20151111
  Transmission Date: 20160304
  Serious: Yes (Hospitalization)
  Sender: FDA-Public Use
  Company Number: ALCN2015BR006792

PATIENT
  Age: 8 Year
  Sex: Male

DRUGS (2)
  1. MYDRIACYL [Suspect]
     Active Substance: TROPICAMIDE
     Indication: DIAGNOSTIC PROCEDURE
     Dosage: 1 GTT, ONCE/SINGLE
     Route: 047
     Dates: start: 20151027, end: 20151027
  2. ALCAINE [Suspect]
     Active Substance: PROPARACAINE HYDROCHLORIDE
     Indication: DIAGNOSTIC PROCEDURE
     Dosage: 1 GTT, ONCE/SINGLE
     Route: 047
     Dates: start: 20151027, end: 20151027

REACTIONS (1)
  - Seizure [Unknown]

NARRATIVE: CASE EVENT DATE: 20151027
